FAERS Safety Report 23839511 (Version 1)
Quarter: 2024Q2

REPORT INFORMATION
  Report Type: Spontaneous
  Country: US (occurrence: US)
  Receive Date: 20240510
  Receipt Date: 20240510
  Transmission Date: 20240715
  Serious: No
  Sender: FDA-Public Use
  Company Number: US-TAKEDA-2024TUS046145

PATIENT
  Age: 26 Year
  Sex: Female

DRUGS (1)
  1. ADZYNMA [Suspect]
     Active Substance: ADAMTS13, RECOMBINANT-KRHN
     Indication: Thrombotic thrombocytopenic purpura
     Dosage: UNK UNK, Q2WEEKS
     Route: 065
     Dates: start: 20240326

REACTIONS (2)
  - Product dose omission issue [Unknown]
  - No adverse event [Unknown]

NARRATIVE: CASE EVENT DATE: 20240507
